FAERS Safety Report 24624679 (Version 15)
Quarter: 2025Q4

REPORT INFORMATION
  Report Type: Report from Study
  Country: US (occurrence: US)
  Receive Date: 20241115
  Receipt Date: 20251218
  Transmission Date: 20260117
  Serious: Yes (Hospitalization, Other)
  Sender: TAKEDA
  Company Number: US-TAKEDA-2023TUS086739

PATIENT
  Sex: Female
  Weight: 90 kg

DRUGS (19)
  1. LANADELUMAB [Suspect]
     Active Substance: LANADELUMAB
     Indication: Immune system disorder
     Dosage: 300 MILLIGRAM, Q2WEEKS
     Dates: start: 20230816
  2. LANADELUMAB [Suspect]
     Active Substance: LANADELUMAB
     Dosage: 300 MILLIGRAM, Q2WEEKS
     Dates: start: 202308
  3. LANADELUMAB [Suspect]
     Active Substance: LANADELUMAB
     Dosage: UNK UNK, Q2WEEKS
  4. LANADELUMAB [Suspect]
     Active Substance: LANADELUMAB
     Dosage: 300 MILLIGRAM, Q2WEEKS
  5. ACETAMINOPHEN [Concomitant]
     Active Substance: ACETAMINOPHEN
     Dosage: UNK
  6. EPINEPHRINE [Concomitant]
     Active Substance: EPINEPHRINE
     Dosage: UNK
  7. SODIUM CHLORIDE [Concomitant]
     Active Substance: SODIUM CHLORIDE
     Dosage: UNK
  8. SODIUM CHLORIDE [Concomitant]
     Active Substance: SODIUM CHLORIDE
     Dosage: 10 MILLILITER
  9. RUCONEST [Concomitant]
     Active Substance: CONESTAT ALFA
     Dosage: UNK
  10. DIPHENHYDRAMINE [Concomitant]
     Active Substance: DIPHENHYDRAMINE
     Dosage: UNK
  11. SODIUM CHLORIDE [Concomitant]
     Active Substance: SODIUM CHLORIDE
     Dosage: UNK
  12. GAMUNEX-C [Concomitant]
     Active Substance: HUMAN IMMUNOGLOBULIN G
     Indication: Hypergammaglobulinaemia
     Dosage: UNK
  13. GAMUNEX-C [Concomitant]
     Active Substance: HUMAN IMMUNOGLOBULIN G
     Indication: Immune system disorder
  14. TOBRAMYCIN [Concomitant]
     Active Substance: TOBRAMYCIN
     Dosage: UNK UNK, Q4WEEKS
  15. BERINERT [Concomitant]
     Active Substance: HUMAN C1-ESTERASE INHIBITOR
     Dosage: UNK
  16. HEPARIN SODIUM [Concomitant]
     Active Substance: HEPARIN SODIUM
     Dosage: UNK
  17. SILDENAFIL CITRATE [Concomitant]
     Active Substance: SILDENAFIL CITRATE
     Dosage: UNK
  18. STERILE WATER [Concomitant]
     Active Substance: WATER
     Dosage: UNK
  19. TYMLOS [Concomitant]
     Active Substance: ABALOPARATIDE
     Dosage: UNK

REACTIONS (37)
  - Ear haemorrhage [Unknown]
  - Renal haemorrhage [Unknown]
  - Mouth haemorrhage [Unknown]
  - Pulmonary haemorrhage [Unknown]
  - Epistaxis [Unknown]
  - Pneumonia [Not Recovered/Not Resolved]
  - Blindness [Unknown]
  - Eye haemorrhage [Unknown]
  - Weight increased [Unknown]
  - Gastrointestinal infection [Unknown]
  - Granulomatosis with polyangiitis [Unknown]
  - Fungaemia [Unknown]
  - Haematidrosis [Unknown]
  - Sepsis [Not Recovered/Not Resolved]
  - Chronic respiratory failure [Unknown]
  - Lung disorder [Unknown]
  - Laryngeal oedema [Unknown]
  - Haematological infection [Unknown]
  - Pulmonary thrombosis [Unknown]
  - Hereditary angioedema [Recovered/Resolved]
  - Pulmonary vasculitis [Unknown]
  - Pseudomonas infection [Unknown]
  - Clostridium difficile infection [Unknown]
  - Tracheal haemorrhage [Unknown]
  - Internal haemorrhage [Unknown]
  - Dyspnoea [Unknown]
  - Brain oedema [Unknown]
  - Infection [Unknown]
  - Cellulitis [Unknown]
  - Complication associated with device [Unknown]
  - Stress [Unknown]
  - Injury [Unknown]
  - Pain [Unknown]
  - Head injury [Unknown]
  - Fall [Unknown]
  - Weight decreased [Unknown]
  - Headache [Unknown]

NARRATIVE: CASE EVENT DATE: 20231127
